FAERS Safety Report 8826143 (Version 2)
Quarter: 2012Q4

REPORT INFORMATION
  Report Type: Report from Study
  Country: GB (occurrence: GB)
  Receive Date: 20121005
  Receipt Date: 20121025
  Transmission Date: 20130627
  Serious: Yes (Other)
  Sender: FDA-Public Use
  Company Number: GB-ROCHE-1141581

PATIENT
  Age: 46 Year
  Sex: Female

DRUGS (6)
  1. OMALIZUMAB [Suspect]
     Indication: ASTHMA
     Route: 058
     Dates: start: 20120907
  2. OMALIZUMAB [Suspect]
     Route: 058
     Dates: start: 20120921
  3. VENTOLIN [Concomitant]
  4. SERETIDE [Concomitant]
     Route: 065
  5. ZAFIRLUKAST [Concomitant]
     Route: 065
  6. COSMOFER [Concomitant]
     Route: 065
     Dates: start: 20120131

REACTIONS (5)
  - Diarrhoea [Recovered/Resolved]
  - Malaise [Recovered/Resolved]
  - Swelling face [Recovered/Resolved]
  - Fatigue [Recovered/Resolved]
  - Dizziness [Recovered/Resolved]
